FAERS Safety Report 10767746 (Version 2)
Quarter: 2016Q4

REPORT INFORMATION
  Report Type: Report from Study
  Country: GB (occurrence: GB)
  Receive Date: 20150205
  Receipt Date: 20161111
  Transmission Date: 20170206
  Serious: Yes (Hospitalization)
  Sender: FDA-Public Use
  Company Number: PHHO2015GB001691

PATIENT
  Age: 36 Year
  Sex: Female
  Weight: 115 kg

DRUGS (4)
  1. AIN457 [Suspect]
     Active Substance: SECUKINUMAB
     Indication: PSORIASIS
     Dosage: 300 MG, UNK
     Route: 058
     Dates: start: 20141014, end: 20150107
  2. IODINE. [Concomitant]
     Active Substance: IODINE
     Indication: ARTHRITIS
     Dosage: 600 MG, QD
     Route: 048
     Dates: start: 20120404
  3. TRAMADOL. [Concomitant]
     Active Substance: TRAMADOL
     Indication: ARTHRITIS
     Dosage: 50 MG, PRN
     Route: 048
     Dates: start: 20120403
  4. GABAPENTIN. [Concomitant]
     Active Substance: GABAPENTIN
     Indication: ARTHRITIS
     Dosage: 400 MG, TID
     Route: 048
     Dates: start: 20131015

REACTIONS (1)
  - H1N1 influenza [Recovered/Resolved with Sequelae]

NARRATIVE: CASE EVENT DATE: 20150125
